FAERS Safety Report 8549953-0 (Version None)
Quarter: 2012Q3

REPORT INFORMATION
  Report Type: 
  Country: None (occurrence: None)
  Receive Date: 20120718
  Receipt Date: 20120703
  Transmission Date: 20120928
  Serious: Yes (Death, Hospitalization)
  Sender: FDA-Public Use
  Company Number: 2012AP002047

PATIENT
  Age: 65 Year
  Sex: Male

DRUGS (6)
  1. OLANZAPINE [Suspect]
     Indication: SCHIZOPHRENIA
     Dosage: 30 MG; QD; 10 MG; QD
  2. RISPERIDONE [Concomitant]
  3. CLOZAPINE [Suspect]
     Indication: SCHIZOPHRENIA
     Dosage: 100 MG; QD;
  4. HALOPERIDOL [Concomitant]
  5. SODIUM DIOCTYL [Concomitant]
  6. SULFOSUCCINATE [Concomitant]

REACTIONS (13)
  - DIARRHOEA [None]
  - CONDITION AGGRAVATED [None]
  - TACHYPNOEA [None]
  - NAUSEA [None]
  - MALAISE [None]
  - DIVERTICULUM [None]
  - ILEUS PARALYTIC [None]
  - DECREASED APPETITE [None]
  - ASPIRATION [None]
  - TACHYCARDIA [None]
  - HYPOTENSION [None]
  - VOMITING [None]
  - DISEASE COMPLICATION [None]
